FAERS Safety Report 9753136 (Version 1)
Quarter: 2013Q4

REPORT INFORMATION
  Report Type: Spontaneous
  Country: US (occurrence: US)
  Receive Date: 20131213
  Receipt Date: 20131213
  Transmission Date: 20140711
  Serious: No
  Sender: FDA-Public Use
  Company Number: US-GILEAD-2010-0026450

PATIENT
  Sex: Male

DRUGS (15)
  1. LETAIRIS [Suspect]
     Indication: PULMONARY ARTERIAL HYPERTENSION
     Route: 048
     Dates: start: 20090710
  2. LYRICA [Concomitant]
  3. WARFARIN SODIUM [Concomitant]
  4. ALLOPURINOL [Concomitant]
  5. LORAZEPAM [Concomitant]
  6. IPRATROPIUM [Concomitant]
  7. VICODIN [Concomitant]
  8. NASONEX [Concomitant]
  9. CLARINEX [Concomitant]
  10. ADVAIR 250-50 DISKUS [Concomitant]
  11. SPIRIVA [Concomitant]
  12. B-D INSULIN [Concomitant]
  13. DIALYVITE 800 ZINC 15 [Concomitant]
  14. ACIPHEN [Concomitant]
  15. RENAL GEL [Concomitant]

REACTIONS (2)
  - Muscular weakness [Unknown]
  - Asthenia [Unknown]
